FAERS Safety Report 9373023 (Version 1)
Quarter: 2013Q2

REPORT INFORMATION
  Report Type: Spontaneous
  Country: TR (occurrence: None)
  Receive Date: 20130624
  Receipt Date: 20130624
  Transmission Date: 20140414
  Serious: Yes (Death, Hospitalization)
  Sender: FDA-Public Use
  Company Number: TR-ALKEM-000096

PATIENT
  Age: 17 Year
  Sex: Female

DRUGS (3)
  1. METFORMIN (METFORMIN) [Suspect]
     Dosage: 75.00 DOSAGE
  2. RUPATADINE [Suspect]
     Dosage: 20.00 DOSAGE
  3. AMITRIPTYLINE (AMITRIPTYLINE) [Suspect]

REACTIONS (12)
  - Lactic acidosis [None]
  - Ventricular tachycardia [None]
  - Drug interaction [None]
  - Completed suicide [None]
  - Incorrect dose administered [None]
  - Lethargy [None]
  - Blood pressure decreased [None]
  - Heart rate increased [None]
  - Respiratory rate increased [None]
  - Blood glucose increased [None]
  - Haemodialysis [None]
  - Toxicity to various agents [None]
